FAERS Safety Report 7468387-3 (Version None)
Quarter: 2011Q2

REPORT INFORMATION
  Report Type: 
  Country: None (occurrence: None)
  Receive Date: 20110509
  Receipt Date: 20110506
  Transmission Date: 20111010
  Serious: Yes (Other)
  Sender: FDA-Public Use
  Company Number: US-PFIZER INC-2011008343

PATIENT
  Sex: Female

DRUGS (3)
  1. LYRICA [Suspect]
     Indication: CONVULSION
     Dosage: UNK
     Route: 048
  2. SPIRONOLACTONE [Suspect]
     Indication: ATRIAL FIBRILLATION
     Dosage: 25 MG, 1X/DAY
     Route: 048
     Dates: start: 20100101
  3. DIGOXIN [Suspect]
     Indication: ATRIAL FIBRILLATION
     Dosage: UNK
     Dates: start: 20100101

REACTIONS (7)
  - PNEUMONIA [None]
  - NAIL DISORDER [None]
  - INCONTINENCE [None]
  - ONYCHALGIA [None]
  - ONYCHOCLASIS [None]
  - ATRIAL FIBRILLATION [None]
  - SOMNOLENCE [None]
